FAERS Safety Report 5930392-3 (Version None)
Quarter: 2008Q4

REPORT INFORMATION
  Report Type: 
  Country: None (occurrence: None)
  Receive Date: 20081022
  Receipt Date: 20081009
  Transmission Date: 20090506
  Serious: No
  Sender: FDA-Public Use
  Company Number: US024852

PATIENT
  Age: 79 Year
  Sex: Male

DRUGS (1)
  1. FENTORA [Suspect]
     Dosage: ONCE BUCCAL
     Route: 002
     Dates: start: 20080531, end: 20080531

REACTIONS (2)
  - INCORRECT ROUTE OF DRUG ADMINISTRATION [None]
  - MEDICATION ERROR [None]
